FAERS Safety Report 5728599-3 (Version None)
Quarter: 2008Q2

REPORT INFORMATION
  Report Type: 
  Country: None (occurrence: None)
  Receive Date: 20080430
  Receipt Date: 20080422
  Transmission Date: 20081010
  Serious: Yes (Other)
  Sender: FDA-Public Use
  Company Number: 2008SP007648

PATIENT
  Age: 57 Year
  Sex: Male
  Weight: 105.7 kg

DRUGS (2)
  1. TEMODAL [Suspect]
     Indication: GLIOBLASTOMA MULTIFORME
     Dosage: PO; 150 MG/M2; QD; PO
     Route: 048
     Dates: start: 20070604
  2. TEMODAL [Suspect]
     Indication: GLIOBLASTOMA MULTIFORME
     Dosage: PO; 150 MG/M2; QD; PO
     Route: 048
     Dates: start: 20080327

REACTIONS (2)
  - DEEP VEIN THROMBOSIS [None]
  - PLATELET COUNT DECREASED [None]
